FAERS Safety Report 15697752 (Version 2)
Quarter: 2018Q4

REPORT INFORMATION
  Report Type: Spontaneous
  Country: AT (occurrence: AT)
  Receive Date: 20181207
  Receipt Date: 20181213
  Transmission Date: 20190205
  Serious: Yes (Disabling)
  Sender: FDA-Public Use
  Company Number: AT-ROCHE-2223517

PATIENT
  Age: 52 Year
  Sex: Female
  Weight: 52 kg

DRUGS (4)
  1. SANDIMMUN NEORAL [Suspect]
     Active Substance: CYCLOSPORINE
     Indication: PROPHYLAXIS AGAINST GRAFT VERSUS HOST DISEASE
     Dosage: (2 X 1.5 MG/KG, TARGET LEVEL 200 NG/ML)
     Route: 042
     Dates: start: 20161130, end: 20161212
  2. CICLOSPORIN [Suspect]
     Active Substance: CYCLOSPORINE
     Indication: PROPHYLAXIS AGAINST GRAFT VERSUS HOST DISEASE
     Dosage: (2 X 1.5 MG/KG, TARGET LEVEL 200 NG/ML)
     Route: 048
     Dates: start: 20161212, end: 20170102
  3. CELLCEPT [Suspect]
     Active Substance: MYCOPHENOLATE MOFETIL\MYCOPHENOLATE MOFETIL HYDROCHLORIDE
     Indication: PROPHYLAXIS
     Dosage: 15 MG/KG BODY WEIGHT
     Route: 048
     Dates: start: 20161201, end: 20170110
  4. PREGABALIN. [Suspect]
     Active Substance: PREGABALIN
     Indication: POLYNEUROPATHY
     Route: 048
     Dates: start: 20161130, end: 201701

REACTIONS (7)
  - Graft versus host disease in skin [Unknown]
  - Toxic encephalopathy [Not Recovered/Not Resolved]
  - Disturbance in attention [Not Recovered/Not Resolved]
  - Graft versus host disease in gastrointestinal tract [Unknown]
  - Memory impairment [Not Recovered/Not Resolved]
  - Graft versus host disease in liver [Unknown]
  - Amaurosis [Unknown]

NARRATIVE: CASE EVENT DATE: 20161230
